FAERS Safety Report 8467487-9 (Version None)
Quarter: 2012Q2

REPORT INFORMATION
  Report Type: 
  Country: None (occurrence: None)
  Receive Date: 20120626
  Receipt Date: 20120625
  Transmission Date: 20120825
  Serious: Yes (Death)
  Sender: FDA-Public Use
  Company Number: US-ROCHE-1081557

PATIENT

DRUGS (4)
  1. IRINOTECAN HCL [Concomitant]
     Route: 065
  2. FLUOROURACIL [Concomitant]
     Route: 065
  3. AVASTIN [Suspect]
     Indication: COLORECTAL CANCER METASTATIC
     Route: 065
  4. LEUCOVORIN CALCIUM [Concomitant]
     Indication: COLORECTAL CANCER METASTATIC
     Route: 065

REACTIONS (1)
  - METASTATIC NEOPLASM [None]
